FAERS Safety Report 6446283-8 (Version None)
Quarter: 2009Q4

REPORT INFORMATION
  Report Type: 
  Country: None (occurrence: None)
  Receive Date: 20091119
  Receipt Date: 20091106
  Transmission Date: 20100525
  Serious: Yes (Other)
  Sender: FDA-Public Use
  Company Number: JP-ROCHE-668845

PATIENT
  Age: 9 Year
  Sex: Male

DRUGS (5)
  1. TAMIFLU [Suspect]
     Indication: INFLUENZA
     Route: 048
     Dates: start: 20091030, end: 20091030
  2. SURGAM [Suspect]
     Indication: INFLUENZA
     Route: 048
     Dates: start: 20091029, end: 20091102
  3. MUCODYNE [Suspect]
     Indication: INFLUENZA
     Route: 048
     Dates: start: 20091020, end: 20091102
  4. COUGHCODE-N [Suspect]
     Indication: INFLUENZA
     Route: 048
     Dates: start: 20091029, end: 20091102
  5. FLOMOX [Suspect]
     Indication: INFLUENZA
     Dosage: DOSE FORM: FINE GRANULE
     Route: 048
     Dates: start: 20091030, end: 20091030

REACTIONS (1)
  - ABNORMAL BEHAVIOUR [None]
